FAERS Safety Report 8783031 (Version 1)
Quarter: 2012Q4

REPORT INFORMATION
  Report Type: 
  Country: DE (occurrence: DE)
  Receive Date: 20120913
  Receipt Date: 20120913
  Transmission Date: 20130627
  Serious: Yes (Other)
  Sender: FDA-Public Use
  Company Number: DE-ASTRAZENECA-2012SE70115

PATIENT
  Sex: Female

DRUGS (5)
  1. SYMBICORT [Suspect]
     Route: 055
     Dates: start: 2007
  2. ASS [Concomitant]
  3. CARMEN [Concomitant]
  4. KARVEZIDE [Concomitant]
  5. BERODUAL [Concomitant]

REACTIONS (2)
  - Ageusia [Not Recovered/Not Resolved]
  - Hypogeusia [Unknown]
